FAERS Safety Report 7403091-9 (Version None)
Quarter: 2011Q1

REPORT INFORMATION
  Report Type: 
  Country: None (occurrence: None)
  Receive Date: 20110316
  Receipt Date: 20110303
  Transmission Date: 20110831
  Serious: Yes (Hospitalization)
  Sender: FDA-Public Use
  Company Number: WSDF_00756

PATIENT
  Sex: Male
  Weight: 81.8 kg

DRUGS (8)
  1. LEVOXYL [Concomitant]
  2. CLARITIN [Concomitant]
  3. PLAQUENIL [Concomitant]
  4. ZESTRIL [Concomitant]
  5. OS-CAL [Concomitant]
  6. WINRHO SDF LIQUID [Suspect]
     Indication: IDIOPATHIC THROMBOCYTOPENIC PURPURA
     Dosage: (51.29 UG/'KG TOTAL INTRAVENOUS (NOT OTHERWISE SPECIFIED)), ()
     Route: 042
     Dates: start: 20080926, end: 20080926
  7. WINRHO SDF LIQUID [Suspect]
     Indication: IDIOPATHIC THROMBOCYTOPENIC PURPURA
     Dosage: (51.29 UG/'KG TOTAL INTRAVENOUS (NOT OTHERWISE SPECIFIED)), ()
     Route: 042
     Dates: start: 20080926, end: 20080926
  8. PREDNISONE [Concomitant]

REACTIONS (10)
  - HAEMOGLOBIN DECREASED [None]
  - ATELECTASIS [None]
  - INTRAVASCULAR HAEMOLYSIS [None]
  - BLOOD UREA INCREASED [None]
  - MUSCULOSKELETAL DISCOMFORT [None]
  - HEADACHE [None]
  - CHILLS [None]
  - NEUTROPHIL COUNT INCREASED [None]
  - ASTHENIA [None]
  - PNEUMONIA BACTERIAL [None]
